FAERS Safety Report 9124638 (Version 2)
Quarter: 2013Q2

REPORT INFORMATION
  Report Type: Spontaneous
  Country: US (occurrence: US)
  Receive Date: 20130116
  Receipt Date: 20130509
  Transmission Date: 20140414
  Serious: Yes (Hospitalization, Other)
  Sender: FDA-Public Use
  Company Number: US-TEVA-380474USA

PATIENT
  Age: 49 Year
  Sex: Male

DRUGS (8)
  1. SERTRALINE [Suspect]
     Dosage: 100 MILLIGRAM DAILY;
  2. DOXEPIN [Suspect]
     Dosage: 25 MILLIGRAM DAILY;
  3. VORINOSTAT [Suspect]
     Indication: T-CELL LYMPHOMA
     Dosage: 400 MILLIGRAM DAILY;
  4. HYDROCHLOROTHIAZIDE [Concomitant]
     Dosage: 25 MILLIGRAM DAILY;
  5. NPH INSULIN [Concomitant]
  6. INSULIN, REGULAR [Concomitant]
  7. NAPROXEN SODIUM [Concomitant]
     Indication: PAIN
  8. OXYCODONE [Concomitant]
     Indication: PAIN

REACTIONS (5)
  - Electrocardiogram QT prolonged [Not Recovered/Not Resolved]
  - Torsade de pointes [Recovered/Resolved]
  - Ventricular tachycardia [Recovered/Resolved]
  - Pericardial effusion [Unknown]
  - Hypokalaemia [Recovered/Resolved]
